FAERS Safety Report 18351559 (Version 2)
Quarter: 2020Q4

REPORT INFORMATION
  Report Type: Spontaneous
  Country: CO (occurrence: CO)
  Receive Date: 20201007
  Receipt Date: 20201021
  Transmission Date: 20210114
  Serious: Yes (Hospitalization, Other)
  Sender: FDA-Public Use
  Company Number: CO-REGENERON PHARMACEUTICALS, INC.-2020-80223

PATIENT

DRUGS (2)
  1. EYLEA [Suspect]
     Active Substance: AFLIBERCEPT
     Indication: NEOVASCULAR AGE-RELATED MACULAR DEGENERATION
     Dosage: UNK (OD - UNKNOWN TOTAL NUMBER OF INJECTIONS)
     Route: 031
  2. EYLEA [Suspect]
     Active Substance: AFLIBERCEPT
     Dosage: 1 DF, QD
     Route: 031
     Dates: start: 20200928, end: 20200928

REACTIONS (3)
  - Ocular hypertension [Recovered/Resolved]
  - Eye pain [Recovered/Resolved]
  - Keratitis [Recovered/Resolved]
